FAERS Safety Report 21593986 (Version 1)
Quarter: 2022Q4

REPORT INFORMATION
  Report Type: Spontaneous
  Country: US (occurrence: US)
  Receive Date: 20221115
  Receipt Date: 20221115
  Transmission Date: 20230112
  Serious: Yes (Other)
  Sender: FDA-Public Use
  Company Number: US-AMGEN-USASP2022192751

PATIENT
  Age: 27 Year
  Sex: Male

DRUGS (8)
  1. XGEVA [Suspect]
     Active Substance: DENOSUMAB
     Indication: Non-renal cell carcinoma of kidney
     Dosage: 120 MILLIGRAM, Q6WK
     Route: 065
     Dates: start: 2013
  2. NEULASTA [Suspect]
     Active Substance: PEGFILGRASTIM
     Indication: Non-renal cell carcinoma of kidney
     Dosage: UNK
     Route: 065
     Dates: start: 2013
  3. PACLITAXEL [Concomitant]
     Active Substance: PACLITAXEL
     Indication: Non-renal cell carcinoma of kidney
     Dosage: 175 MILLIGRAM PER SQUARE METER, Q3WK
     Dates: start: 2013
  4. PACLITAXEL [Concomitant]
     Active Substance: PACLITAXEL
     Dosage: 80 MILLIGRAM PER SQUARE METER, Q3WK
     Dates: start: 2013
  5. CARBOPLATIN [Concomitant]
     Active Substance: CARBOPLATIN
     Indication: Non-renal cell carcinoma of kidney
     Dosage: UNK, Q3WK
     Dates: start: 2013
  6. CISPLATIN [Concomitant]
     Active Substance: CISPLATIN
     Indication: Non-renal cell carcinoma of kidney
     Dosage: 35 MILLIGRAM PER SQUARE METER , Q3WK
     Dates: start: 2013
  7. GEMCITABINE [Concomitant]
     Active Substance: GEMCITABINE
     Indication: Non-renal cell carcinoma of kidney
     Dosage: 1000 MILLIGRAM PER SQUARE METER, Q3WK
     Dates: start: 2013
  8. EVEROLIMUS [Concomitant]
     Active Substance: EVEROLIMUS
     Indication: Non-renal cell carcinoma of kidney
     Dosage: 10 MILLIGRAM, QD
     Dates: start: 201312

REACTIONS (3)
  - Non-renal cell carcinoma of kidney [Unknown]
  - Myelosuppression [Unknown]
  - Off label use [Unknown]

NARRATIVE: CASE EVENT DATE: 20130101
